FAERS Safety Report 8472244-3 (Version None)
Quarter: 2012Q2

REPORT INFORMATION
  Report Type: 
  Country: None (occurrence: None)
  Receive Date: 20120627
  Receipt Date: 20111007
  Transmission Date: 20120825
  Serious: Yes (Hospitalization)
  Sender: FDA-Public Use
  Company Number: US-MYLANLABS-2011S1020963

PATIENT
  Age: 71 Year
  Sex: Female
  Weight: 88 kg

DRUGS (11)
  1. NORVASC [Concomitant]
     Indication: BLOOD PRESSURE
     Dosage: 5MG TABLETS - TWO PER DAY
  2. METHOTREXATE [Suspect]
     Indication: PSORIASIS
     Route: 048
     Dates: start: 20090630, end: 20110901
  3. XANAX [Concomitant]
     Indication: ANXIETY
  4. FOLIC ACID [Concomitant]
     Route: 048
  5. CELEXA [Concomitant]
     Indication: MOOD ALTERED
  6. ZESTRIL [Concomitant]
     Indication: BLOOD PRESSURE
  7. VITAMIN D [Concomitant]
  8. COLACE [Concomitant]
     Dosage: PRN
     Route: 048
  9. ZOCOR [Concomitant]
     Indication: BLOOD CHOLESTEROL INCREASED
  10. SYNTHROID [Concomitant]
     Indication: HYPOTHYROIDISM
  11. ASPIRIN [Concomitant]

REACTIONS (1)
  - PANCREATITIS [None]
